FAERS Safety Report 5452236-9 (Version None)
Quarter: 2007Q3

REPORT INFORMATION
  Report Type: 
  Country: None (occurrence: None)
  Receive Date: 20070914
  Receipt Date: 20070907
  Transmission Date: 20080115
  Serious: Yes (Hospitalization)
  Sender: FDA-Public Use
  Company Number: FRWYE277907SEP07

PATIENT
  Sex: Female
  Weight: 3.13 kg

DRUGS (1)
  1. EFFEXOR XR [Suspect]
     Indication: DEPRESSION
     Route: 064

REACTIONS (12)
  - AGITATION NEONATAL [None]
  - CAESAREAN SECTION [None]
  - DRUG EXPOSURE DURING PREGNANCY [None]
  - HYPERTONIA NEONATAL [None]
  - HYPOTONIA NEONATAL [None]
  - MOVEMENT DISORDER [None]
  - NEONATAL HYPOXIA [None]
  - POOR SUCKING REFLEX [None]
  - RESPIRATION ABNORMAL [None]
  - RESPIRATORY RATE DECREASED [None]
  - SOMNOLENCE NEONATAL [None]
  - TREMOR NEONATAL [None]
